FAERS Safety Report 20809188 (Version 1)
Quarter: 2022Q2

REPORT INFORMATION
  Report Type: Other
  Country: AU (occurrence: AU)
  Receive Date: 20220510
  Receipt Date: 20220510
  Transmission Date: 20220721
  Serious: Yes (Other)
  Sender: FDA-Public Use
  Company Number: AU-COLLEGIUM PHARMACEUTICAL, INC.-2022CGM00294

PATIENT
  Sex: Female

DRUGS (2)
  1. TAPENTADOL [Suspect]
     Active Substance: TAPENTADOL
     Indication: Intestinal obstruction
     Dosage: UNK
  2. TAPENTADOL [Suspect]
     Active Substance: TAPENTADOL
     Dosage: UNK

REACTIONS (5)
  - Pallor [Unknown]
  - Syncope [Unknown]
  - Hyperhidrosis [Unknown]
  - Nausea [Unknown]
  - Heart rate decreased [Unknown]
